FAERS Safety Report 7465120-6 (Version None)
Quarter: 2011Q2

REPORT INFORMATION
  Report Type: 
  Country: None (occurrence: None)
  Receive Date: 20110509
  Receipt Date: 20110504
  Transmission Date: 20111010
  Serious: Yes (Hospitalization)
  Sender: FDA-Public Use
  Company Number: BR-US-EMD SERONO, INC.-7057943

PATIENT
  Sex: Female

DRUGS (2)
  1. SEROPHENE [Suspect]
     Dates: start: 20110401
  2. SEROPHENE [Suspect]
     Indication: PRODUCT USED FOR UNKNOWN INDICATION

REACTIONS (2)
  - OVARIAN HYPERSTIMULATION SYNDROME [None]
  - OVARIAN CYST [None]
